FAERS Safety Report 8831075 (Version 3)
Quarter: 2012Q4

REPORT INFORMATION
  Report Type: 
  Country: JP (occurrence: JP)
  Receive Date: 20121009
  Receipt Date: 20121120
  Transmission Date: 20130627
  Serious: Yes (Hospitalization)
  Sender: FDA-Public Use
  Company Number: JP-MYLANLABS-2012S1020149

PATIENT
  Age: 46 Year
  Sex: Female
  Weight: 46 kg

DRUGS (18)
  1. CARBOPLATIN [Suspect]
     Indication: OVARIAN CANCER
     Route: 041
     Dates: start: 20120824, end: 20120824
  2. CARBOPLATIN [Suspect]
     Route: 041
     Dates: start: 20120824, end: 20120824
  3. PACLITAXEL [Suspect]
     Indication: OVARIAN CANCER
     Route: 041
     Dates: start: 20120824, end: 20120824
  4. GINSENG, KOREAN [Suspect]
     Indication: IMMUNE SYSTEM DISORDER
     Route: 048
     Dates: start: 20120807, end: 20120817
  5. GINSENG, KOREAN [Suspect]
     Indication: IMMUNE SYSTEM DISORDER
     Route: 048
     Dates: start: 20120831, end: 20120902
  6. MUCOSTA [Concomitant]
     Indication: GASTRITIS
     Route: 048
     Dates: start: 20120707
  7. FAMOTIDINE [Concomitant]
     Indication: GASTRITIS
     Route: 048
     Dates: start: 20120728
  8. BUSCOPAN [Concomitant]
     Indication: ABDOMINAL PAIN
     Route: 048
     Dates: start: 20120813
  9. BIOFERMIN /00275501/ [Concomitant]
     Indication: DIARRHOEA
     Route: 048
     Dates: start: 20120814
  10. DECADRON [Concomitant]
     Indication: ADVERSE EVENT
     Route: 048
     Dates: start: 20120824, end: 20120826
  11. EMEND /01627301/ [Concomitant]
     Indication: ADVERSE EVENT
     Route: 048
     Dates: start: 20120824, end: 20120826
  12. CRAVIT [Concomitant]
     Indication: PRODUCT USED FOR UNKNOWN INDICATION
     Route: 048
  13. MAGMITT [Concomitant]
     Indication: CONSTIPATION
     Route: 048
     Dates: start: 20120831
  14. DECADRON PHOSPHATE [Concomitant]
     Indication: PREMEDICATION
     Route: 041
     Dates: start: 20120824, end: 20120824
  15. FAMOTIDINE [Concomitant]
     Indication: PREMEDICATION
     Route: 041
     Dates: start: 20120824, end: 20120824
  16. ALOXI [Concomitant]
     Indication: PREMEDICATION
     Route: 041
     Dates: start: 20120824, end: 20120824
  17. LOXONIN [Concomitant]
     Indication: MYALGIA
     Route: 048
     Dates: start: 20120727
  18. RESTAMIN /00000401/ [Concomitant]
     Indication: PREMEDICATION
     Route: 048
     Dates: start: 20120824, end: 20120824

REACTIONS (2)
  - Drug eruption [Recovered/Resolved]
  - Enterocolitis [None]
